FAERS Safety Report 7426009-1 (Version None)
Quarter: 2011Q2

REPORT INFORMATION
  Report Type: 
  Country: None (occurrence: None)
  Receive Date: 20110420
  Receipt Date: 20101006
  Transmission Date: 20111010
  Serious: Yes (Hospitalization, Other)
  Sender: FDA-Public Use
  Company Number: US-BAYER-201028816NA

PATIENT
  Age: 21 Year
  Sex: Female
  Weight: 88.9 kg

DRUGS (3)
  1. PROMETHAZINE [Concomitant]
     Dosage: 25 MG, UNK
     Dates: start: 20070101
  2. YASMIN [Suspect]
     Indication: AMENORRHOEA
     Dosage: UNK
     Dates: start: 20070326, end: 20070618
  3. YASMIN [Suspect]
     Indication: ACNE
     Route: 048
     Dates: start: 20060501, end: 20060801

REACTIONS (2)
  - CHOLECYSTITIS CHRONIC [None]
  - GALLBLADDER INJURY [None]
